FAERS Safety Report 15013196 (Version 1)
Quarter: 2018Q2

REPORT INFORMATION
  Report Type: Spontaneous
  Country: BE (occurrence: BE)
  Receive Date: 20180614
  Receipt Date: 20180614
  Transmission Date: 20180711
  Serious: Yes (Life-Threatening, Hospitalization)
  Sender: FDA-Public Use
  Company Number: BE-MYLANLABS-2018M1039281

PATIENT
  Age: 76 Year
  Sex: Female

DRUGS (3)
  1. PREGABALIN. [Suspect]
     Active Substance: PREGABALIN
     Indication: FIBROMYALGIA
     Dosage: 150 MG, BID
     Route: 065
  2. AMIODARONE [Suspect]
     Active Substance: AMIODARONE
     Indication: ATRIAL FIBRILLATION
     Dosage: 200 MG, QD
     Route: 065
  3. DULOXETINE. [Interacting]
     Active Substance: DULOXETINE
     Indication: FIBROMYALGIA
     Dosage: CHRONIC USE OF DULOXETINE
     Route: 065

REACTIONS (7)
  - Ventricular fibrillation [Recovered/Resolved]
  - Toxicity to various agents [Recovered/Resolved]
  - Circulatory collapse [Recovered/Resolved]
  - Cardiac arrest [Recovered/Resolved]
  - Hypokalaemia [Recovered/Resolved]
  - Drug interaction [Recovered/Resolved]
  - Electrocardiogram QT prolonged [Recovered/Resolved]
